FAERS Safety Report 25101408 (Version 1)
Quarter: 2025Q1

REPORT INFORMATION
  Report Type: Other
  Country: CO (occurrence: CO)
  Receive Date: 20250320
  Receipt Date: 20250320
  Transmission Date: 20250408
  Serious: Yes (Other)
  Sender: TOLMAR
  Company Number: CO-TOLMAR, INC.-25CO057093

PATIENT
  Sex: Female
  Weight: 43 kg

DRUGS (10)
  1. ELIGARD [Suspect]
     Active Substance: LEUPROLIDE ACETATE
     Indication: Precocious puberty
     Dosage: 45 MILLIGRAM, Q 6 MONTH
     Route: 058
     Dates: start: 20241112
  2. ELIGARD [Suspect]
     Active Substance: LEUPROLIDE ACETATE
     Indication: Precocious puberty
  3. CEPHALEXIN [Concomitant]
     Active Substance: CEPHALEXIN
     Indication: Nephrotic syndrome
     Dosage: UNK, QD
  4. CEPHALEXIN [Concomitant]
     Active Substance: CEPHALEXIN
     Indication: Ureteric dilatation
  5. CEPHALEXIN [Concomitant]
     Active Substance: CEPHALEXIN
     Indication: Vesicoureteric reflux
  6. CEPHALEXIN [Concomitant]
     Active Substance: CEPHALEXIN
     Indication: Nephrolithiasis
  7. UNSPECIFIED INGREDIENT [Concomitant]
     Active Substance: UNSPECIFIED INGREDIENT
     Indication: Nephrotic syndrome
  8. UNSPECIFIED INGREDIENT [Concomitant]
     Active Substance: UNSPECIFIED INGREDIENT
     Indication: Ureteric dilatation
  9. UNSPECIFIED INGREDIENT [Concomitant]
     Active Substance: UNSPECIFIED INGREDIENT
     Indication: Vesicoureteric reflux
  10. UNSPECIFIED INGREDIENT [Concomitant]
     Active Substance: UNSPECIFIED INGREDIENT
     Indication: Nephrolithiasis

REACTIONS (4)
  - Purpura [Not Recovered/Not Resolved]
  - Hyperphagia [Unknown]
  - Anxiety disorder [Unknown]
  - Increased appetite [Unknown]

NARRATIVE: CASE EVENT DATE: 20240101
